FAERS Safety Report 9007217 (Version 3)
Quarter: 2013Q2

REPORT INFORMATION
  Report Type: Spontaneous
  Country: FR (occurrence: FR)
  Receive Date: 20130110
  Receipt Date: 20130506
  Transmission Date: 20140414
  Serious: Yes (Hospitalization)
  Sender: FDA-Public Use
  Company Number: FR-BRISTOL-MYERS SQUIBB COMPANY-17269978

PATIENT
  Age: 79 Year
  Sex: Female

DRUGS (6)
  1. GLUCOPHAGE TABS 500 MG [Suspect]
     Indication: TYPE 2 DIABETES MELLITUS
     Route: 048
     Dates: end: 20121123
  2. ATENOLOL [Suspect]
     Route: 048
     Dates: end: 20121123
  3. DIAMICRON [Suspect]
     Indication: TYPE 2 DIABETES MELLITUS
     Route: 048
     Dates: end: 20121123
  4. ATORVASTATIN [Suspect]
     Indication: DYSLIPIDAEMIA
     Route: 048
     Dates: end: 20121123
  5. DOLIPRANE [Suspect]
     Route: 048
     Dates: end: 20121123
  6. NISISCO [Suspect]
     Indication: HYPERTENSION
     Route: 048
     Dates: end: 20121123

REACTIONS (2)
  - Dermatitis bullous [Not Recovered/Not Resolved]
  - Eosinophilia [Recovered/Resolved]
